FAERS Safety Report 4354025-5 (Version None)
Quarter: 2004Q2

REPORT INFORMATION
  Report Type: 
  Country: None (occurrence: None)
  Receive Date: 20040503
  Receipt Date: 20040426
  Transmission Date: 20050107
  Serious: Yes (Death)
  Sender: FDA-Public Use
  Company Number: STA-AE-04-MTX-172

PATIENT
  Age: 72 Year
  Sex: Male

DRUGS (9)
  1. METHOTREXATE [Suspect]
     Indication: RHEUMATOID ARTHRITIS
     Dosage: 10 MG
  2. ENBREL [Suspect]
     Indication: RHEUMATOID ARTHRITIS
     Dosage: 50 MG
     Dates: start: 20001201, end: 20000227
  3. PREDNISOLONE [Concomitant]
  4. WARFARIN SODIUM [Concomitant]
  5. DIGITOXIN TAB [Concomitant]
  6. ISOPTIN [Concomitant]
  7. DIDRONATE (ETIDRONATE DISODIUM) [Concomitant]
  8. INSULIN [Concomitant]
  9. PAROXETINE HCL [Concomitant]

REACTIONS (9)
  - ACUTE MYOCARDIAL INFARCTION [None]
  - BACTERIAL INFECTION [None]
  - CORONARY ARTERY ATHEROSCLEROSIS [None]
  - CORONARY ARTERY THROMBOSIS [None]
  - DIZZINESS [None]
  - HEADACHE [None]
  - LISTERIA SEPSIS [None]
  - LISTLESS [None]
  - NEPHROLITHIASIS [None]
